FAERS Safety Report 12444932 (Version 2)
Quarter: 2025Q2

REPORT INFORMATION
  Report Type: Spontaneous
  Country: RU (occurrence: RU)
  Receive Date: 20160607
  Receipt Date: 20250418
  Transmission Date: 20250716
  Serious: Yes (Death, Other)
  Sender: BIOMARIN
  Company Number: RU-BIOMARINAP-RU-2016-109992

PATIENT

DRUGS (2)
  1. ALDURAZYME [Suspect]
     Active Substance: LARONIDASE
     Indication: Mucopolysaccharidosis I
     Dosage: UNK, QW
     Route: 041
     Dates: start: 20150928, end: 20160323
  2. MYLERAN [Concomitant]
     Active Substance: BUSULFAN
     Indication: Product used for unknown indication

REACTIONS (5)
  - Multiple organ dysfunction syndrome [Fatal]
  - Human polyomavirus infection [Fatal]
  - Neurotoxicity [Fatal]
  - Generalised tonic-clonic seizure [Fatal]
  - Bone marrow transplant [Unknown]

NARRATIVE: CASE EVENT DATE: 20160101
